FAERS Safety Report 9275094 (Version 2)
Quarter: 2013Q2

REPORT INFORMATION
  Report Type: Report from Study
  Country: BD (occurrence: BD)
  Receive Date: 20130507
  Receipt Date: 20130510
  Transmission Date: 20140414
  Serious: Yes (Death)
  Sender: FDA-Public Use
  Company Number: PHHY2013BD044640

PATIENT
  Age: 78 Year
  Sex: Male

DRUGS (1)
  1. ACLASTA [Suspect]
     Indication: OSTEOPOROSIS
     Dosage: ONCE YEARLY
     Route: 042
     Dates: start: 20120606

REACTIONS (1)
  - Death [Fatal]
